FAERS Safety Report 4771567-9 (Version None)
Quarter: 2005Q3

REPORT INFORMATION
  Report Type: 
  Country: None (occurrence: None)
  Receive Date: 20050914
  Receipt Date: 20050914
  Transmission Date: 20060218
  Serious: Yes (Other)
  Sender: FDA-Public Use
  Company Number: None

PATIENT
  Age: 73 Year
  Sex: Male
  Weight: 88.905 kg

DRUGS (1)
  1. ALDARA [Suspect]
     Dosage: 3 TIMES A WEEK
     Dates: start: 20050731

REACTIONS (1)
  - PYREXIA [None]
